FAERS Safety Report 6181085-1 (Version None)
Quarter: 2009Q2

REPORT INFORMATION
  Report Type: 
  Country: None (occurrence: None)
  Receive Date: 20090501
  Receipt Date: 20090325
  Transmission Date: 20091009
  Serious: Yes (Hospitalization)
  Sender: FDA-Public Use
  Company Number: 2009002693

PATIENT
  Sex: Male

DRUGS (2)
  1. TREANDA [Suspect]
     Indication: B-CELL LYMPHOMA
     Dosage: (50 MG/M2, CYCLICAL) , INTRAVENOUS : (70 OR 90 MG/M2) , INTRAVENOUS
     Route: 042
  2. CAMPATH [Concomitant]

REACTIONS (1)
  - TUMOUR LYSIS SYNDROME [None]
